FAERS Safety Report 13745080 (Version 7)
Quarter: 2018Q4

REPORT INFORMATION
  Report Type: Report from Study
  Country: DE (occurrence: DE)
  Receive Date: 20170712
  Receipt Date: 20181031
  Transmission Date: 20190204
  Serious: Yes (Hospitalization)
  Sender: FDA-Public Use
  Company Number: DE-AMGEN-DEUNI2017103647

PATIENT
  Age: 83 Year
  Sex: Female
  Weight: 95 kg

DRUGS (34)
  1. DEXAMETHASONE. [Suspect]
     Active Substance: DEXAMETHASONE
     Indication: PLASMA CELL MYELOMA
     Dosage: 40 MG, UNK
     Route: 065
     Dates: start: 20170228, end: 20170228
  2. DEXAMETHASONE. [Suspect]
     Active Substance: DEXAMETHASONE
     Dosage: 40 MG, UNK
     Route: 065
     Dates: start: 20170307, end: 20170307
  3. DEXAMETHASONE. [Suspect]
     Active Substance: DEXAMETHASONE
     Dosage: 40 MG, UNK
     Route: 065
     Dates: start: 20170331, end: 20170331
  4. DEXAMETHASONE. [Suspect]
     Active Substance: DEXAMETHASONE
     Dosage: 40 MG, UNK
     Route: 065
     Dates: start: 20170424, end: 20170424
  5. TORASEMID RATIOPHARM [Concomitant]
     Indication: CHRONIC KIDNEY DISEASE
     Dosage: 20 MG, QD
  6. LYRICA [Concomitant]
     Active Substance: PREGABALIN
     Indication: BONE PAIN
     Dosage: 50 MG, BID
  7. BICANORM [Concomitant]
     Active Substance: SODIUM BICARBONATE
     Indication: CHRONIC KIDNEY DISEASE
     Dosage: 1 G, TID
  8. CARFILZOMIB [Suspect]
     Active Substance: CARFILZOMIB
     Indication: PLASMA CELL MYELOMA
     Dosage: 10 MG/M2, UNK
     Route: 042
     Dates: start: 20170228, end: 20170301
  9. DEXAMETHASONE. [Suspect]
     Active Substance: DEXAMETHASONE
     Dosage: 40 MG, UNK
     Route: 065
     Dates: start: 20170321, end: 20170321
  10. LISINOPRIL RATIOPHARM [Concomitant]
     Active Substance: LISINOPRIL
     Indication: CARDIAC ASSISTANCE DEVICE USER
     Dosage: 2.5 MG, QD
  11. EUTHYROX [Concomitant]
     Active Substance: LEVOTHYROXINE SODIUM
     Indication: PROPHYLAXIS
     Dosage: 100 MUG, QD
  12. LAXANS-RATIOPHARM PICO [Concomitant]
     Indication: PROPHYLAXIS
     Dosage: 10 UNK, QD
  13. ACIC [Concomitant]
     Active Substance: ACYCLOVIR
     Indication: PROPHYLAXIS
     Dosage: 400 MG, QD
     Dates: start: 20170307
  14. CARFILZOMIB [Suspect]
     Active Substance: CARFILZOMIB
     Dosage: 10 MG/M2, UNK
     Route: 042
     Dates: start: 20170314, end: 20170315
  15. NOVAMINSULFON-RATIOPHARM [Concomitant]
     Active Substance: METAMIZOLE
     Indication: BONE PAIN
     Dosage: 500 MG, QID
  16. NEUPRO [Concomitant]
     Active Substance: ROTIGOTINE
     Indication: RESTLESS LEGS SYNDROME
     Dosage: 10 MG, QD
  17. CARFILZOMIB [Suspect]
     Active Substance: CARFILZOMIB
     Dosage: 10 MG/M2, UNK
     Route: 042
     Dates: start: 20170331, end: 20170401
  18. CARFILZOMIB [Suspect]
     Active Substance: CARFILZOMIB
     Dosage: 10 MG/M2, UNK
     Route: 042
     Dates: start: 20170410, end: 20170411
  19. LENALIDOMIDE [Suspect]
     Active Substance: LENALIDOMIDE
     Dosage: 10 MG, UNK
     Route: 065
     Dates: start: 20170331, end: 20170420
  20. DEXAMETHASONE. [Suspect]
     Active Substance: DEXAMETHASONE
     Dosage: 40 MG, UNK
     Route: 065
     Dates: start: 20170417, end: 20170417
  21. PRAMIPEXOL RATIOPHARM [Concomitant]
     Indication: RESTLESS LEGS SYNDROME
     Dosage: 0.18 MG, QD
  22. PRIVIGEN [Concomitant]
     Active Substance: HUMAN IMMUNOGLOBULIN G
     Indication: SECONDARY IMMUNODEFICIENCY
     Dosage: 30 MG, Q3WK
  23. LENALIDOMIDE [Suspect]
     Active Substance: LENALIDOMIDE
     Indication: PLASMA CELL MYELOMA
     Dosage: 10 MG, UNK
     Route: 065
     Dates: start: 20170228, end: 20170320
  24. DEXAMETHASONE. [Suspect]
     Active Substance: DEXAMETHASONE
     Dosage: 40 MG, UNK
     Route: 065
     Dates: start: 20170504, end: 20170504
  25. HALDOL [Concomitant]
     Active Substance: HALOPERIDOL
     Indication: PROPHYLAXIS
     Dosage: 1 MG, QD
  26. COTRIM [Concomitant]
     Active Substance: SULFAMETHOXAZOLE\TRIMETHOPRIM
     Indication: PROPHYLAXIS
     Dosage: 960 MG, QWK
     Dates: start: 20170410
  27. CARFILZOMIB [Suspect]
     Active Substance: CARFILZOMIB
     Dosage: 27 MG/M2, UNK
     Route: 042
     Dates: start: 20170504, end: 20170505
  28. LENALIDOMIDE [Suspect]
     Active Substance: LENALIDOMIDE
     Dosage: 10 MG, UNK
     Route: 065
     Dates: start: 20170428, end: 20170518
  29. PALLADON [Concomitant]
     Active Substance: HYDROMORPHONE
     Indication: BONE PAIN
     Dosage: 20 MG, QD
  30. PANTOPRAZOL RATIOPARM [Concomitant]
     Indication: PROPHYLAXIS
     Dosage: 40 MG, QD
  31. CARFILZOMIB [Suspect]
     Active Substance: CARFILZOMIB
     Dosage: 27 MG/M2, UNK
     Route: 042
     Dates: start: 20170307, end: 20170308
  32. DEXAMETHASONE. [Suspect]
     Active Substance: DEXAMETHASONE
     Dosage: 40 MG, UNK
     Route: 065
     Dates: start: 20170314, end: 20170314
  33. DEXAMETHASONE. [Suspect]
     Active Substance: DEXAMETHASONE
     Dosage: 40 MG, UNK
     Route: 065
     Dates: start: 20170410, end: 20170410
  34. CALCILAC [Concomitant]
     Active Substance: CALCIUM CARBONATE
     Indication: PROPHYLAXIS
     Dosage: 500 MG, QD
     Dates: start: 2016

REACTIONS (9)
  - Malaise [Not Recovered/Not Resolved]
  - Anaemia [Recovering/Resolving]
  - Neutrophil count decreased [Recovered/Resolved]
  - Hypocalcaemia [Not Recovered/Not Resolved]
  - Oral pain [Recovered/Resolved]
  - Nausea [Recovered/Resolved]
  - Platelet count decreased [Not Recovered/Not Resolved]
  - Vomiting [Recovered/Resolved]
  - Back pain [Not Recovered/Not Resolved]

NARRATIVE: CASE EVENT DATE: 20170328
